FAERS Safety Report 7001382-7 (Version None)
Quarter: 2010Q3

REPORT INFORMATION
  Report Type: 
  Country: None (occurrence: None)
  Receive Date: 20100920
  Receipt Date: 20100309
  Transmission Date: 20110219
  Serious: Yes (Other)
  Sender: FDA-Public Use
  Company Number: US-ASTRAZENECA-2009SE08232

PATIENT
  Age: 599 Month
  Sex: Female
  Weight: 102.5 kg

DRUGS (2)
  1. SEROQUEL [Suspect]
     Indication: DEPRESSION
     Route: 048
     Dates: start: 20060701, end: 20070501
  2. CYMBALTA [Concomitant]

REACTIONS (4)
  - DIABETIC COMA [None]
  - DRUG HYPERSENSITIVITY [None]
  - OBESITY [None]
  - TYPE 2 DIABETES MELLITUS [None]
